FAERS Safety Report 8115345-1 (Version None)
Quarter: 2012Q1

REPORT INFORMATION
  Report Type: 
  Country: None (occurrence: None)
  Receive Date: 20120206
  Receipt Date: 20120206
  Transmission Date: 20120608
  Serious: Yes (Life-Threatening, Hospitalization)
  Sender: FDA-Public Use
  Company Number: None

PATIENT
  Age: 41 Year
  Sex: Male
  Weight: 72.574 kg

DRUGS (2)
  1. ABILIFY [Suspect]
     Indication: DEPRESSION
     Dosage: 1 PILL
     Dates: start: 20111216, end: 20120106
  2. ABILIFY [Suspect]
     Indication: CRANIOCEREBRAL INJURY
     Dosage: 1 PILL
     Dates: start: 20111216, end: 20120106

REACTIONS (3)
  - MONOPLEGIA [None]
  - TARDIVE DYSKINESIA [None]
  - PAIN [None]
